FAERS Safety Report 6766518-1 (Version None)
Quarter: 2010Q2

REPORT INFORMATION
  Report Type: 
  Country: None (occurrence: None)
  Receive Date: 20100609
  Receipt Date: 20100527
  Transmission Date: 20101027
  Serious: Yes (Hospitalization)
  Sender: FDA-Public Use
  Company Number: DSA_43222_2010

PATIENT
  Age: 55 Year
  Sex: Female

DRUGS (9)
  1. ELONTRIL (ELONTRIL) (NOT SPECIFIED) [Suspect]
     Indication: MAJOR DEPRESSION
     Dosage: (NOT THE PRESCRIBED DOSE), (150 MG QD ORAL), (300 MG QD ORAL)
     Route: 048
     Dates: start: 20100201, end: 20100201
  2. ELONTRIL (ELONTRIL) (NOT SPECIFIED) [Suspect]
     Indication: PERSONALITY DISORDER
     Dosage: (NOT THE PRESCRIBED DOSE), (150 MG QD ORAL), (300 MG QD ORAL)
     Route: 048
     Dates: start: 20100201, end: 20100201
  3. ELONTRIL (ELONTRIL) (NOT SPECIFIED) [Suspect]
     Indication: MAJOR DEPRESSION
     Dosage: (NOT THE PRESCRIBED DOSE), (150 MG QD ORAL), (300 MG QD ORAL)
     Route: 048
     Dates: start: 20100518, end: 20100518
  4. ELONTRIL (ELONTRIL) (NOT SPECIFIED) [Suspect]
     Indication: PERSONALITY DISORDER
     Dosage: (NOT THE PRESCRIBED DOSE), (150 MG QD ORAL), (300 MG QD ORAL)
     Route: 048
     Dates: start: 20100518, end: 20100518
  5. ELONTRIL (ELONTRIL) (NOT SPECIFIED) [Suspect]
     Indication: MAJOR DEPRESSION
     Dosage: (NOT THE PRESCRIBED DOSE), (150 MG QD ORAL), (300 MG QD ORAL)
     Route: 048
     Dates: start: 20100201
  6. ELONTRIL (ELONTRIL) (NOT SPECIFIED) [Suspect]
     Indication: PERSONALITY DISORDER
     Dosage: (NOT THE PRESCRIBED DOSE), (150 MG QD ORAL), (300 MG QD ORAL)
     Route: 048
     Dates: start: 20100201
  7. LITHIUM [Concomitant]
  8. LORAZEPAM [Concomitant]
  9. ESCITALOPRAM [Concomitant]

REACTIONS (7)
  - BALANCE DISORDER [None]
  - BLOOD CREATINE PHOSPHOKINASE INCREASED [None]
  - CONVULSION [None]
  - GAIT DISTURBANCE [None]
  - MULTIPLE DRUG OVERDOSE INTENTIONAL [None]
  - SUICIDE ATTEMPT [None]
  - TREMOR [None]
